FAERS Safety Report 4944733-7 (Version None)
Quarter: 2006Q1

REPORT INFORMATION
  Report Type: 
  Country: None (occurrence: None)
  Receive Date: 20060123
  Receipt Date: 20051130
  Transmission Date: 20060701
  Serious: Yes (Hospitalization)
  Sender: FDA-Public Use
  Company Number: 2005-BP-20833BP

PATIENT
  Sex: Female

DRUGS (2)
  1. APTIVUS [Suspect]
     Dosage: (SEE TEXT, TPV/RTV 250/100 MG), PO
     Route: 048
  2. T20 [Concomitant]

REACTIONS (1)
  - LIVER FUNCTION TEST ABNORMAL [None]
